FAERS Safety Report 16004798 (Version 1)
Quarter: 2019Q1

REPORT INFORMATION
  Report Type: Spontaneous
  Country: US (occurrence: US)
  Receive Date: 20190130
  Receipt Date: 20190130
  Transmission Date: 20190418
  Serious: No
  Sender: FDA-Public Use
  Company Number: None

PATIENT
  Sex: Male

DRUGS (2)
  1. ISENTRESS [Suspect]
     Active Substance: RALTEGRAVIR POTASSIUM
     Indication: HIV INFECTION
     Route: 048
     Dates: start: 2018
  2. PRAVASTATIN SODIUM 20MG TABS TEVA PHARMACEUTICALS [Suspect]
     Active Substance: PRAVASTATIN SODIUM
     Indication: HIV INFECTION
     Route: 048
     Dates: start: 2018

REACTIONS (2)
  - Diarrhoea [None]
  - Hyperhidrosis [None]
